FAERS Safety Report 12990864 (Version 1)
Quarter: 2016Q4

REPORT INFORMATION
  Report Type: Spontaneous
  Country: FR (occurrence: FR)
  Receive Date: 20161201
  Receipt Date: 20161201
  Transmission Date: 20170207
  Serious: Yes (Hospitalization)
  Sender: FDA-Public Use
  Company Number: FR-009507513-1611FRA014001

PATIENT
  Age: 67 Year
  Sex: Male

DRUGS (7)
  1. URBANYL [Concomitant]
     Active Substance: CLOBAZAM
  2. HALDOL [Concomitant]
     Active Substance: HALOPERIDOL
  3. JANUVIA [Suspect]
     Active Substance: SITAGLIPTIN PHOSPHATE
     Dosage: 1 DF, QD
     Route: 048
     Dates: end: 201610
  4. METFORMIN [Concomitant]
     Active Substance: METFORMIN HYDROCHLORIDE
  5. XEROQUEL [Concomitant]
     Active Substance: QUETIAPINE FUMARATE
  6. THERALENE [Concomitant]
     Active Substance: TRIMEPRAZINE
  7. NOCTAMIDE [Concomitant]
     Active Substance: LORMETAZEPAM

REACTIONS (2)
  - Abdominal pain [Recovered/Resolved]
  - Lipase increased [Recovered/Resolved]

NARRATIVE: CASE EVENT DATE: 20161019
